FAERS Safety Report 19364304 (Version 4)
Quarter: 2023Q4

REPORT INFORMATION
  Report Type: Spontaneous
  Country: US (occurrence: US)
  Receive Date: 20210602
  Receipt Date: 20231013
  Transmission Date: 20240110
  Serious: No
  Sender: FDA-Public Use
  Company Number: US-AVEO ONCOLOGY-2021-AVEO-US003344

PATIENT

DRUGS (20)
  1. FOTIVDA [Suspect]
     Active Substance: TIVOZANIB HYDROCHLORIDE
     Indication: Renal cell carcinoma
     Dosage: 1.34 MG, CYCLIC, 1 CAPSULE FOR 21 DAYS AND 7 DAYS OFF
     Route: 048
     Dates: start: 20210507
  2. TYLENOL [Concomitant]
     Active Substance: ACETAMINOPHEN
     Indication: Pain
     Dosage: 650 MG, TAKE BY MOUTH EVERY 6 HOURS AS NEEDED
     Route: 048
  3. ALBUTEROL [Concomitant]
     Active Substance: ALBUTEROL
     Indication: Cough
     Dosage: 1 VIAL VIA NEBULIZER, Q6HR AS NEEDED
     Dates: start: 20190911
  4. ALBUTEROL [Concomitant]
     Active Substance: ALBUTEROL
     Indication: Bronchospasm
  5. ALBUTEROL [Concomitant]
     Active Substance: ALBUTEROL
     Indication: Wheezing
  6. FLEXERIL [Concomitant]
     Active Substance: CYCLOBENZAPRINE HYDROCHLORIDE
     Dosage: 10 MG, DAILY BY MOUTH 2 TIMES A DAY
     Route: 048
     Dates: start: 20180228
  7. DECADRON [Concomitant]
     Active Substance: DEXAMETHASONE
     Dosage: 6 MG, Q6HR
  8. DECADRON [Concomitant]
     Active Substance: DEXAMETHASONE
     Dosage: 4 MG, TAKE 4 MG BID FOR 3 DAYS, THEN TAKE 2 MG BID FOR 3 DAYS, THEN 1 MG BID FOR 3 DAYS THEN STOP
     Route: 048
  9. DOCUSATE SODIUM [Concomitant]
     Active Substance: DOCUSATE SODIUM
     Dosage: 100 MG, DAILY TAKE ONE CAPSULE BY MOUTH 2 TIMES A DAY
     Route: 048
  10. AVODART [Concomitant]
     Active Substance: DUTASTERIDE
     Dosage: 0.5 MG, DAILY TAKE BY MOUTH
     Route: 048
     Dates: start: 20180228
  11. DURAGESIC [Concomitant]
     Active Substance: FENTANYL
     Indication: Pain
     Dosage: 25 MCG/HR, PLACE PATCH ON SKIN EVERY 3RD DAY
     Route: 062
  12. DILAUDID [Concomitant]
     Active Substance: HYDROMORPHONE HYDROCHLORIDE
     Indication: Pain
     Dosage: 2 MG, TAKE 1 TABLET (2MG) BY MOUTH EVERY 3 HOURS AS NEEDED FOR MODERATE PAIN (PAIN SCALE 4-6). TAKE
     Route: 048
  13. DILAUDID [Concomitant]
     Active Substance: HYDROMORPHONE HYDROCHLORIDE
     Indication: Pain
  14. SYNTHROID [Concomitant]
     Active Substance: LEVOTHYROXINE SODIUM
     Dosage: 75 MCG, TAKE 1 TABLET BY MOUTH EVERY DAY
     Route: 048
     Dates: start: 20201224
  15. COZAAR [Concomitant]
     Active Substance: LOSARTAN POTASSIUM
     Dosage: 100 MG, DAILY TAKE ONE TABLET BY MOUTH
     Route: 048
     Dates: start: 20201007
  16. MIRALAX [Concomitant]
     Active Substance: POLYETHYLENE GLYCOL 3350
     Dosage: 17 G, DAILY TAKE 1 PACKET BY MOUTH
     Route: 048
  17. SENOKOT [Concomitant]
     Active Substance: SENNOSIDES
     Dosage: 8.6 MG, DAILY TAKE 2 TABLETS BY MOUTH 2 TIMES A DAY
     Route: 048
  18. FLOMAX [Concomitant]
     Active Substance: TAMSULOSIN HYDROCHLORIDE
     Dosage: 0.4 MG, ONCE
     Dates: start: 20180228
  19. AMBIEN [Concomitant]
     Active Substance: ZOLPIDEM TARTRATE
     Dosage: 10 MG. TAKE BY MOUTH NIGHTLY AS NEEDED
     Route: 048
     Dates: start: 20200428
  20. OXYCODONE [Concomitant]
     Active Substance: OXYCODONE
     Indication: Pain

REACTIONS (9)
  - Decreased appetite [Unknown]
  - Nausea [Unknown]
  - Dehydration [Unknown]
  - Cancer pain [Unknown]
  - Bedridden [Unknown]
  - Night sweats [Unknown]
  - Fluid intake reduced [Unknown]
  - Urine output decreased [Unknown]
  - Pain [Unknown]

NARRATIVE: CASE EVENT DATE: 20210513
